FAERS Safety Report 11452903 (Version 1)
Quarter: 2015Q3

REPORT INFORMATION
  Report Type: Spontaneous
  Country: US (occurrence: US)
  Receive Date: 20150831
  Receipt Date: 20150831
  Transmission Date: 20151125
  Serious: No
  Sender: FDA-Public Use
  Company Number: US-ELI_LILLY_AND_COMPANY-US200910006225

PATIENT
  Age: 63 Year
  Sex: Female

DRUGS (5)
  1. CYMBALTA [Suspect]
     Active Substance: DULOXETINE HYDROCHLORIDE
     Dosage: 120 MG, DAILY (1/D)
     Route: 048
     Dates: start: 200909, end: 20091012
  2. NEURONTIN [Concomitant]
     Active Substance: GABAPENTIN
  3. VALIUM [Concomitant]
     Active Substance: DIAZEPAM
  4. CYMBALTA [Suspect]
     Active Substance: DULOXETINE HYDROCHLORIDE
     Indication: ANXIETY
     Dosage: 60 MG, DAILY (1/D)
     Route: 048
  5. CYMBALTA [Suspect]
     Active Substance: DULOXETINE HYDROCHLORIDE
     Dosage: 90 MG, DAILY (1/D)
     Route: 048
     Dates: start: 200909, end: 200909

REACTIONS (4)
  - Expired product administered [Recovered/Resolved]
  - Pruritus generalised [Unknown]
  - Intentional product misuse [Recovered/Resolved]
  - Rash generalised [Recovering/Resolving]

NARRATIVE: CASE EVENT DATE: 2006
